FAERS Safety Report 25707681 (Version 1)
Quarter: 2025Q3

REPORT INFORMATION
  Report Type: Report from Study
  Country: US (occurrence: US)
  Receive Date: 20250820
  Receipt Date: 20250820
  Transmission Date: 20251020
  Serious: Yes (Other)
  Sender: ABBVIE
  Company Number: US-ABBVIE-6423375

PATIENT
  Sex: Female

DRUGS (1)
  1. SKYRIZI [Suspect]
     Active Substance: RISANKIZUMAB-RZAA
     Indication: Psoriasis
     Route: 058
     Dates: start: 20231110

REACTIONS (4)
  - Stent placement [Recovering/Resolving]
  - Back pain [Recovering/Resolving]
  - Injection site bruising [Recovered/Resolved]
  - Headache [Recovering/Resolving]
